FAERS Safety Report 25747623 (Version 2)
Quarter: 2025Q3

REPORT INFORMATION
  Report Type: Report from Study
  Country: JP (occurrence: JP)
  Receive Date: 20250901
  Receipt Date: 20250905
  Transmission Date: 20251020
  Serious: Yes (Other)
  Sender: RECORDATI
  Company Number: JP-ORPHANEU-2025006271

PATIENT
  Age: 0 Year
  Sex: Male
  Weight: 2.612 kg

DRUGS (28)
  1. CARBAGLU [Suspect]
     Active Substance: CARGLUMIC ACID
     Indication: Propionic acidaemia
     Dates: start: 20240903, end: 20240918
  2. CARBAGLU [Suspect]
     Active Substance: CARGLUMIC ACID
     Indication: Methylmalonic acidaemia
     Dates: start: 20240919, end: 20241024
  3. CARBAGLU [Suspect]
     Active Substance: CARGLUMIC ACID
     Indication: Multiple carboxylase deficiency
     Dates: start: 20241025, end: 20241030
  4. CARBAGLU [Suspect]
     Active Substance: CARGLUMIC ACID
     Indication: Off label use
     Dosage: 100 MILLIGRAM, QD (DAILY DOSE BEFORE EVENING MEAL)
     Dates: start: 20241031, end: 20241110
  5. CARBAGLU [Suspect]
     Active Substance: CARGLUMIC ACID
     Indication: Hyperammonaemia
  6. Argi u [Concomitant]
     Indication: Product used for unknown indication
     Dosage: 700 MILLIGRAM, QD, CONTINUOUS VIA INJECTION
     Dates: start: 20240903, end: 20240915
  7. MEYLON [Concomitant]
     Active Substance: SODIUM BICARBONATE
     Indication: Product used for unknown indication
     Dates: start: 20240903, end: 20240903
  8. Tham set [Concomitant]
     Indication: Product used for unknown indication
     Dosage: 15-360 ML QD, CONTINUOUS VIA INJECTION
     Dates: start: 20240903, end: 20240910
  9. CYANOCOBALAMIN\PYRIDOXINE HYDROCHLORIDE\THIAMINE [Concomitant]
     Active Substance: CYANOCOBALAMIN\PYRIDOXINE HYDROCHLORIDE\THIAMINE
     Indication: Product used for unknown indication
     Dosage: 500 MG, QD, CONTINUOUS VIA INJECTION
     Dates: start: 20240903, end: 20240903
  10. Bisulase [Concomitant]
     Indication: Product used for unknown indication
     Dosage: 80 MG, QD INJECTION
     Dates: start: 20240905, end: 20240906
  11. LEVOCARNITINE HYDROCHLORIDE [Concomitant]
     Active Substance: LEVOCARNITINE HYDROCHLORIDE
     Indication: Product used for unknown indication
     Dosage: 300 MILLIGRAM, TID INJECTION
     Dates: start: 20240904, end: 20240907
  12. LEVOCARNITINE HYDROCHLORIDE [Concomitant]
     Active Substance: LEVOCARNITINE HYDROCHLORIDE
     Dosage: 450 MG DAILY DOSE, TID VIA INJECTION
     Dates: start: 20240907, end: 20240916
  13. LEVOCARNITINE HYDROCHLORIDE [Concomitant]
     Active Substance: LEVOCARNITINE HYDROCHLORIDE
     Dosage: 300 MILLIGRAM DAILY DOSE, TID
     Route: 048
     Dates: start: 20240917
  14. BUPHENYL [Concomitant]
     Active Substance: SODIUM PHENYLBUTYRATE
     Indication: Product used for unknown indication
     Dosage: 800 MG DAILY DOSE, QID
     Route: 048
     Dates: start: 20240906, end: 20241015
  15. BUPHENYL [Concomitant]
     Active Substance: SODIUM PHENYLBUTYRATE
     Dosage: 400 MG DAILY DOSE, QID
     Route: 048
     Dates: start: 20241016, end: 20241022
  16. BIOTIN [Concomitant]
     Active Substance: BIOTIN
     Indication: Product used for unknown indication
     Dosage: 10 MG, QD, CONTINUOUS, INJECTION
     Dates: start: 20240906, end: 20240912
  17. BIOTIN [Concomitant]
     Active Substance: BIOTIN
     Route: 048
     Dates: start: 20240913, end: 20240919
  18. BIOTIN [Concomitant]
     Active Substance: BIOTIN
     Dosage: 50 MG, QID (DAILY)
     Route: 048
     Dates: start: 20240919, end: 20240925
  19. BIOTIN [Concomitant]
     Active Substance: BIOTIN
     Dosage: 100 MG, QID (DAILY)
     Route: 048
     Dates: start: 20240926
  20. Cinal [Concomitant]
     Indication: Product used for unknown indication
     Dosage: 250 MG DAILY DOSE, BID
     Route: 048
     Dates: start: 20240907
  21. RIBOFLAVIN [Concomitant]
     Active Substance: RIBOFLAVIN
     Indication: Product used for unknown indication
     Dosage: 80 MILLIGRAM DAILY DOSE, BID
     Route: 048
     Dates: start: 20240925
  22. COBAMAMIDE [Concomitant]
     Active Substance: COBAMAMIDE
     Indication: Product used for unknown indication
     Dosage: 1 MILLIGRAM DAILY DOSE, BID
     Route: 048
     Dates: start: 20240925
  23. EPINEPHRINE [Concomitant]
     Active Substance: EPINEPHRINE
     Indication: Product used for unknown indication
     Dosage: 0.1-0.7 MICROGRAM/KG/MIN, QD, CONTINUOUS VIA INJECTION
     Dates: start: 20240912, end: 20240914
  24. PITRESSIN [Concomitant]
     Active Substance: VASOPRESSIN
     Indication: Product used for unknown indication
     Dosage: 0.01-0.04U/KG/H QD, CONTINUOUS, INJECTION
     Dates: start: 20240912, end: 20240914
  25. DOBUTAMINE [Concomitant]
     Active Substance: DOBUTAMINE HYDROCHLORIDE
     Indication: Product used for unknown indication
     Dosage: 5-10?G/KG/MIN, QD, CONTINUOUS INJECTION
     Dates: start: 20240906, end: 20240925
  26. DOPAMINE [Concomitant]
     Active Substance: DOPAMINE HYDROCHLORIDE
     Indication: Product used for unknown indication
     Dosage: 5-10?G/KG/MIN, QD, CONTINUOUS INJECTION
     Dates: start: 20240906, end: 20240924
  27. UBIDECARENONE [Concomitant]
     Active Substance: UBIDECARENONE
     Indication: Product used for unknown indication
     Dosage: 12.5 MILLIGRAM, BID
     Route: 048
     Dates: start: 20240907, end: 20240916
  28. FURSULTIAMINE HYDROCHLORIDE [Concomitant]
     Active Substance: FURSULTIAMINE HYDROCHLORIDE
     Indication: Product used for unknown indication
     Dosage: 100 MILLIGRAM, BID
     Route: 048
     Dates: start: 20240925

REACTIONS (4)
  - Acute hepatic failure [Recovered/Resolved]
  - Condition aggravated [Recovered/Resolved]
  - Sepsis [Recovered/Resolved]
  - Off label use [Recovered/Resolved]

NARRATIVE: CASE EVENT DATE: 20240914
